FAERS Safety Report 6429806-4 (Version None)
Quarter: 2009Q4

REPORT INFORMATION
  Report Type: 
  Country: None (occurrence: None)
  Receive Date: 20091106
  Receipt Date: 20091029
  Transmission Date: 20100525
  Serious: Yes (Death, Other)
  Sender: FDA-Public Use
  Company Number: PHHY2009CA47164

PATIENT
  Sex: Male

DRUGS (2)
  1. CLOZARIL [Suspect]
     Indication: SCHIZOPHRENIA
     Dosage: 400 MG, QHS
     Route: 048
     Dates: start: 20000928, end: 20090801
  2. METFORMIN [Concomitant]
     Indication: BLOOD GLUCOSE INCREASED

REACTIONS (3)
  - ANTIPSYCHOTIC DRUG LEVEL INCREASED [None]
  - DEATH [None]
  - WEIGHT DECREASED [None]
